FAERS Safety Report 25255936 (Version 1)
Quarter: 2025Q2

REPORT INFORMATION
  Report Type: Spontaneous
  Country: CN (occurrence: CN)
  Receive Date: 20250430
  Receipt Date: 20250430
  Transmission Date: 20250717
  Serious: Yes (Life-Threatening)
  Sender: ROCHE
  Company Number: CN-ROCHE-10000271489

PATIENT
  Age: 76 Year
  Sex: Female
  Weight: 43 kg

DRUGS (2)
  1. OBINUTUZUMAB [Suspect]
     Active Substance: OBINUTUZUMAB
     Indication: Chronic lymphocytic leukaemia
     Route: 042
     Dates: start: 20250415, end: 20250415
  2. SODIUM CHLORIDE [Concomitant]
     Active Substance: SODIUM CHLORIDE
     Indication: Chronic lymphocytic leukaemia
     Route: 042
     Dates: start: 20250415, end: 20250415

REACTIONS (2)
  - Anaphylactoid reaction [Recovering/Resolving]
  - Off label use [Unknown]

NARRATIVE: CASE EVENT DATE: 20250415
